FAERS Safety Report 10281998 (Version 2)
Quarter: 2014Q3

REPORT INFORMATION
  Report Type: Spontaneous
  Country: IT (occurrence: IT)
  Receive Date: 20140707
  Receipt Date: 20140728
  Transmission Date: 20150326
  Serious: Yes (Other)
  Sender: FDA-Public Use
  Company Number: IT-DSJP-DSE-2014-113628

PATIENT

DRUGS (6)
  1. OLMESARTAN MEDOXOMIL [Suspect]
     Active Substance: OLMESARTAN MEDOXOMIL
     Indication: HYPERTENSION
     Route: 048
  2. DISODIUM CROMOGLYCATE [Concomitant]
     Indication: ASTHMA
     Dosage: UNK, AS NEEDED
     Route: 055
  3. ANTIHISTAMINES [Concomitant]
     Active Substance: ANTIHISTAMINES NOS
     Indication: ASTHMA
  4. POLLINEX QUATTRO [Suspect]
     Active Substance: ALLERGENIC EXTRACTS
     Indication: SEASONAL ALLERGY
     Dosage: UNK
     Dates: start: 201202
  5. SALBUTAMOL [Concomitant]
     Active Substance: ALBUTEROL
     Indication: ASTHMA
     Dosage: UNK, AS NEEDED
     Route: 055
  6. ANTIHISTAMINES [Concomitant]
     Active Substance: ANTIHISTAMINES NOS
     Indication: RHINITIS
     Dosage: UNK, AS NEEDED
     Route: 048

REACTIONS (6)
  - Rhinitis [Unknown]
  - Eyelid oedema [Unknown]
  - Hypotension [Unknown]
  - Asthma [Unknown]
  - Anaphylactic reaction [Unknown]
  - Conjunctivitis [Unknown]

NARRATIVE: CASE EVENT DATE: 201202
